FAERS Safety Report 8932806 (Version 1)
Quarter: 2012Q4

REPORT INFORMATION
  Report Type: 
  Country: AU (occurrence: AU)
  Receive Date: 20121129
  Receipt Date: 20121129
  Transmission Date: 20130627
  Serious: Yes (Hospitalization)
  Sender: FDA-Public Use
  Company Number: AU-ELI_LILLY_AND_COMPANY-AU201211006528

PATIENT
  Sex: Male

DRUGS (12)
  1. HUMULIN 30% REGULAR, 70% NPH [Suspect]
     Dosage: UNK UNK, unknown
     Dates: start: 2011
  2. ENDONE [Concomitant]
  3. NORSPAN [Concomitant]
  4. BISACODYL [Concomitant]
  5. COLOXYL [Concomitant]
  6. NOVASONE [Concomitant]
  7. FISH OIL [Concomitant]
  8. LACTULOSE [Concomitant]
  9. DIABEX [Concomitant]
  10. PANAMAX [Concomitant]
  11. FENERGAN [Concomitant]
  12. ANDRIOL [Concomitant]

REACTIONS (2)
  - Hospitalisation [Unknown]
  - Dysgeusia [Unknown]
